FAERS Safety Report 9478423 (Version 1)
Quarter: 2013Q3

REPORT INFORMATION
  Report Type: Report from Study
  Country: CA (occurrence: CA)
  Receive Date: 20130827
  Receipt Date: 20130827
  Transmission Date: 20140515
  Serious: Yes (Other)
  Sender: FDA-Public Use
  Company Number: CA-JNJFOC-20130813382

PATIENT
  Age: 64 Year
  Sex: Male
  Weight: 83 kg

DRUGS (6)
  1. REMICADE [Suspect]
     Indication: CROHN^S DISEASE
     Route: 042
     Dates: start: 20101012, end: 20130729
  2. SPIRIVA [Concomitant]
     Route: 065
  3. VENTOLIN [Concomitant]
     Route: 055
  4. IRON [Concomitant]
     Route: 065
  5. PURINETHOL [Concomitant]
     Route: 048
  6. PULMICORT [Concomitant]
     Route: 055

REACTIONS (1)
  - Systemic lupus erythematosus [Unknown]
